FAERS Safety Report 15693118 (Version 2)
Quarter: 2019Q3

REPORT INFORMATION
  Report Type: Spontaneous
  Country: CA (occurrence: CA)
  Receive Date: 20181206
  Receipt Date: 20190729
  Transmission Date: 20191004
  Serious: Yes (Hospitalization)
  Sender: FDA-Public Use
  Company Number: CA-TEVA-2018-CA-984550

PATIENT
  Age: 11 Year
  Sex: Male
  Weight: 48 kg

DRUGS (5)
  1. PROPOFOL INJECTION [Suspect]
     Active Substance: PROPOFOL
     Indication: JOINT INJECTION
  2. NAPROXEN. [Concomitant]
     Active Substance: NAPROXEN
  3. TRIAMCINOLONE HEXACETONIDE INJECTABLE SUSPENSION [Concomitant]
  4. METHOTREXATE INJECTION, USP [Concomitant]
     Active Substance: METHOTREXATE
  5. PROPOFOL INJECTION [Suspect]
     Active Substance: PROPOFOL
     Indication: SEDATION
     Route: 042

REACTIONS (1)
  - Priapism [Recovering/Resolving]
